FAERS Safety Report 16914380 (Version 1)
Quarter: 2019Q4

REPORT INFORMATION
  Report Type: Spontaneous
  Country: US (occurrence: US)
  Receive Date: 20190822
  Receipt Date: 20190822
  Transmission Date: 20200122
  Serious: No
  Sender: FDA-Public Use
  Company Number: None

PATIENT

DRUGS (1)
  1. BOTOX [Suspect]
     Active Substance: ONABOTULINUMTOXINA
     Indication: HEMIPLEGIA
     Route: 030
     Dates: start: 201908

REACTIONS (1)
  - Prescribed overdose [None]

NARRATIVE: CASE EVENT DATE: 20190822
